FAERS Safety Report 14362045 (Version 1)
Quarter: 2018Q1

REPORT INFORMATION
  Report Type: Spontaneous
  Country: US (occurrence: US)
  Receive Date: 20180108
  Receipt Date: 20180108
  Transmission Date: 20180509
  Serious: No
  Sender: FDA-Public Use
  Company Number: US-BAYER-2018-002991

PATIENT
  Age: 12 Year
  Sex: Female

DRUGS (1)
  1. ALEVE [Suspect]
     Active Substance: NAPROXEN SODIUM
     Indication: PAIN
     Route: 048
     Dates: start: 201709, end: 201709

REACTIONS (2)
  - Product quality issue [None]
  - Poor quality drug administered [Unknown]

NARRATIVE: CASE EVENT DATE: 201709
